FAERS Safety Report 8144049-4 (Version None)
Quarter: 2012Q1

REPORT INFORMATION
  Report Type: 
  Country: None (occurrence: None)
  Receive Date: 20120217
  Receipt Date: 20120217
  Transmission Date: 20120608
  Serious: Yes (Hospitalization)
  Sender: FDA-Public Use
  Company Number: None

PATIENT
  Age: 60 Year
  Sex: Male
  Weight: 96.161 kg

DRUGS (1)
  1. NATURE RELIEF INSTANT WART/MOLE [Suspect]
     Indication: MOLE EXCISION
     Dosage: N/A
     Dates: start: 20120210, end: 20120210

REACTIONS (3)
  - APPLICATION SITE INFECTION [None]
  - APPLICATION SITE SWELLING [None]
  - FACIAL ASYMMETRY [None]
